FAERS Safety Report 23955878 (Version 1)
Quarter: 2024Q2

REPORT INFORMATION
  Report Type: Spontaneous
  Country: CA (occurrence: None)
  Receive Date: 20240610
  Receipt Date: 20240610
  Transmission Date: 20240716
  Serious: Yes (Other)
  Sender: FDA-Public Use
  Company Number: CA-ROCHE-3577087

PATIENT
  Age: 24 Year
  Sex: Male
  Weight: 55 kg

DRUGS (8)
  1. MYCOPHENOLATE MOFETIL [Suspect]
     Active Substance: MYCOPHENOLATE MOFETIL
     Indication: Immunosuppression
     Route: 048
  2. PREDNISONE ACETATE [Suspect]
     Active Substance: PREDNISONE ACETATE
     Indication: Immunosuppression
     Route: 048
  3. SOLIRIS [Suspect]
     Active Substance: ECULIZUMAB
     Indication: Atypical haemolytic uraemic syndrome
     Dosage: CONCENTRATE FOR?SOLUTION FOR INFUSION
     Route: 042
  4. SOLIRIS [Suspect]
     Active Substance: ECULIZUMAB
     Dosage: CONCENTRATE FOR?SOLUTION FOR INFUSION
     Route: 042
  5. TACROLIMUS [Suspect]
     Active Substance: TACROLIMUS
     Indication: Immunosuppression
     Route: 048
  6. AZATHIOPRINE [Concomitant]
     Active Substance: AZATHIOPRINE
     Indication: Immunosuppression
     Route: 048
  7. CINACALCET [Concomitant]
     Active Substance: CINACALCET
     Route: 048
  8. NIFEDIPINE [Concomitant]
     Active Substance: NIFEDIPINE

REACTIONS (13)
  - Anxiety [Recovering/Resolving]
  - Bone density decreased [Recovering/Resolving]
  - Chronic allograft nephropathy [Recovering/Resolving]
  - Colitis ulcerative [Recovering/Resolving]
  - Condition aggravated [Recovering/Resolving]
  - Depressed mood [Recovering/Resolving]
  - Fatigue [Recovering/Resolving]
  - Hyperparathyroidism tertiary [Recovering/Resolving]
  - Hypertension [Recovering/Resolving]
  - Immunosuppression [Recovering/Resolving]
  - Normocytic anaemia [Recovering/Resolving]
  - Parathyroid tumour benign [Recovering/Resolving]
  - Renal tubular injury [Recovering/Resolving]
